FAERS Safety Report 6237277-6 (Version None)
Quarter: 2009Q2

REPORT INFORMATION
  Report Type: 
  Country: None (occurrence: None)
  Receive Date: 20090617
  Receipt Date: 20080311
  Transmission Date: 20091009
  Serious: No
  Sender: FDA-Public Use
  Company Number: 273036

PATIENT
  Age: 65 Year
  Sex: Male

DRUGS (1)
  1. LEVEMIR [Suspect]
     Indication: TYPE 2 DIABETES MELLITUS
     Dosage: 70 U, QD, SUBCUTANEOUS
     Route: 058
     Dates: start: 20080218

REACTIONS (1)
  - BLOOD GLUCOSE DECREASED [None]
